FAERS Safety Report 23160597 (Version 2)
Quarter: 2024Q1

REPORT INFORMATION
  Report Type: Report from Study
  Country: IL (occurrence: IL)
  Receive Date: 20231108
  Receipt Date: 20240105
  Transmission Date: 20240410
  Serious: Yes (Hospitalization, Other)
  Sender: FDA-Public Use
  Company Number: IL-ALXN-A202303017

PATIENT
  Age: 6 Year
  Sex: Female

DRUGS (19)
  1. KANUMA [Suspect]
     Active Substance: SEBELIPASE ALFA
     Indication: Lysosomal acid lipase deficiency
     Dosage: 3 MG/KG, QW
     Route: 058
     Dates: start: 20170115, end: 20181007
  2. KANUMA [Suspect]
     Active Substance: SEBELIPASE ALFA
     Dosage: UNK UNK, QW
     Route: 058
     Dates: start: 20181014, end: 20190126
  3. KANUMA [Suspect]
     Active Substance: SEBELIPASE ALFA
     Dosage: 3 MG/KG, QW
     Route: 058
     Dates: start: 20190127, end: 20191116
  4. KANUMA [Suspect]
     Active Substance: SEBELIPASE ALFA
     Dosage: UNK UNK, QW
     Route: 058
     Dates: start: 20191117, end: 20210605
  5. KANUMA [Suspect]
     Active Substance: SEBELIPASE ALFA
     Dosage: UNK UNK, QW
     Route: 058
     Dates: start: 20210606, end: 20210626
  6. KANUMA [Suspect]
     Active Substance: SEBELIPASE ALFA
     Dosage: UNK UNK, QW
     Route: 058
     Dates: start: 20210627, end: 20210814
  7. KANUMA [Suspect]
     Active Substance: SEBELIPASE ALFA
     Dosage: UNK UNK, QW
     Route: 058
     Dates: start: 20210815
  8. ERGOCALCIFEROL [Concomitant]
     Active Substance: ERGOCALCIFEROL
     Indication: Vitamin D deficiency
     Dosage: 400 UT, QD
     Route: 048
  9. ERGOCALCIFEROL [Concomitant]
     Active Substance: ERGOCALCIFEROL
     Dosage: 1200 UT, QD
     Route: 048
  10. LACTASE [Concomitant]
     Active Substance: LACTASE
     Indication: Diarrhoea
     Dosage: 1.2 CAPSULE, QD
     Route: 048
  11. ADEK [Concomitant]
     Indication: Vitamin A deficiency
     Dosage: 1 ML, QD
     Route: 048
  12. MINOCIN [Concomitant]
     Active Substance: MINOCYCLINE HYDROCHLORIDE
     Indication: Stomatitis
     Dosage: 73 MG, QD
     Route: 061
  13. IBUPROFEN [Concomitant]
     Active Substance: IBUPROFEN
     Indication: Limb discomfort
     Dosage: 5 ML, TID
     Route: 048
  14. ALDACTONE                          /00006201/ [Concomitant]
     Indication: Ascites
     Dosage: 10 MG, QD
     Route: 048
  15. VITAMIN D3 [Concomitant]
     Active Substance: CHOLECALCIFEROL
     Indication: Vitamin D deficiency
     Dosage: 400 UT, QD
     Route: 048
  16. IRON [Concomitant]
     Active Substance: IRON
     Indication: Iron deficiency
     Dosage: 20 MG, QD
     Route: 048
  17. AUGMENTIN                          /00756801/ [Concomitant]
     Indication: Otitis media acute
     Dosage: 5 ML, QD
     Route: 048
  18. RETINOL [Concomitant]
     Active Substance: RETINOL
     Indication: Vitamin A deficiency
     Dosage: 5000 UT, QD
     Route: 048
  19. AMOXICILLIN TRIHYDRATE [Concomitant]
     Active Substance: AMOXICILLIN
     Indication: Otitis media
     Dosage: 250 MG, BID
     Route: 048

REACTIONS (2)
  - Hernia [Recovered/Resolved]
  - Spontaneous bacterial peritonitis [Recovered/Resolved with Sequelae]

NARRATIVE: CASE EVENT DATE: 20230219
